FAERS Safety Report 6719437-0 (Version None)
Quarter: 2010Q2

REPORT INFORMATION
  Report Type: 
  Country: None (occurrence: None)
  Receive Date: 20100506
  Receipt Date: 20100422
  Transmission Date: 20101027
  Serious: Yes (Other)
  Sender: FDA-Public Use
  Company Number: DSA_43033_2010

PATIENT
  Sex: Female

DRUGS (8)
  1. XENAZINE [Suspect]
     Indication: CHOREA
     Dosage: (12.5 MG BID ORAL)
     Route: 048
     Dates: start: 20100416, end: 20100418
  2. MYSOLINE [Concomitant]
  3. TEGRETOL [Concomitant]
  4. HYDROXYCHLOROQUINE SULFATE [Concomitant]
  5. LODINE [Concomitant]
  6. ALEVE (CAPLET) [Concomitant]
  7. CELEXA [Concomitant]
  8. EVAMIST [Concomitant]

REACTIONS (3)
  - DYSKINESIA [None]
  - HEADACHE [None]
  - NECK PAIN [None]
